FAERS Safety Report 25925572 (Version 1)
Quarter: 2025Q4

REPORT INFORMATION
  Report Type: Spontaneous
  Country: US (occurrence: None)
  Receive Date: 20251014
  Receipt Date: 20251014
  Transmission Date: 20260117
  Serious: Yes (Other)
  Sender: FDA-CTU
  Company Number: None

PATIENT
  Age: 66 Year
  Sex: Female

DRUGS (1)
  1. IBRANCE [Suspect]
     Active Substance: PALBOCICLIB
     Indication: Invasive lobular breast carcinoma
     Dosage: OTHER FREQUENCY : 21 DAYS ON 7 DAYS OFF;?
     Route: 048

REACTIONS (3)
  - Contusion [None]
  - Gingival bleeding [None]
  - Epistaxis [None]
